FAERS Safety Report 4727087-0 (Version None)
Quarter: 2005Q3

REPORT INFORMATION
  Report Type: 
  Country: None (occurrence: None)
  Receive Date: 20050728
  Receipt Date: 20050719
  Transmission Date: 20060218
  Serious: Yes (Hospitalization, Other)
  Sender: FDA-Public Use
  Company Number: BR-JNJFOC-20050703766

PATIENT
  Sex: Female
  Weight: 57 kg

DRUGS (9)
  1. LEVOFLOXACIN [Suspect]
     Indication: URINARY TRACT INFECTION
     Route: 042
     Dates: start: 20040929, end: 20041001
  2. LEVAQUIN [Suspect]
     Dates: start: 20041001, end: 20041006
  3. TRIVORA-21 [Suspect]
  4. TRIVORA-21 [Suspect]
     Indication: CONTRACEPTION
  5. DIPYRONE INJ [Concomitant]
  6. DIPYRONE WITH CAFFEINE [Concomitant]
  7. KETOPROFEN [Concomitant]
  8. ACETAMINOPHEN [Concomitant]
  9. PSYLLIUM PLANTAGO [Concomitant]

REACTIONS (7)
  - ABORTION INFECTED [None]
  - ABORTION SPONTANEOUS [None]
  - COUGH [None]
  - DRUG EXPOSURE DURING PREGNANCY [None]
  - HEADACHE [None]
  - HYPOTENSION [None]
  - PREGNANCY ON ORAL CONTRACEPTIVE [None]
